FAERS Safety Report 4944482-5 (Version None)
Quarter: 2006Q1

REPORT INFORMATION
  Report Type: 
  Country: None (occurrence: None)
  Receive Date: 20060315
  Receipt Date: 20060307
  Transmission Date: 20060701
  Serious: Yes (Other)
  Sender: FDA-Public Use
  Company Number: PHBS2006US03631

PATIENT
  Age: 10 Year
  Sex: Male

DRUGS (1)
  1. OXCARBAZEPINE [Suspect]
     Indication: PARTIAL SEIZURES
     Dosage: 300 MG, BID

REACTIONS (6)
  - ASTHENIA [None]
  - BONE DISORDER [None]
  - EXERCISE TOLERANCE DECREASED [None]
  - GROWTH RETARDATION [None]
  - HYPOTHYROIDISM [None]
  - THYROXINE FREE DECREASED [None]
